FAERS Safety Report 10168877 (Version 5)
Quarter: 2014Q3

REPORT INFORMATION
  Report Type: Spontaneous
  Country: JP (occurrence: JP)
  Receive Date: 20140513
  Receipt Date: 20140908
  Transmission Date: 20150326
  Serious: Yes (Hospitalization)
  Sender: FDA-Public Use
  Company Number: JP-ABBVIE-12P-087-1028967-00

PATIENT
  Age: 24 Year
  Sex: Female
  Weight: 56.9 kg

DRUGS (12)
  1. PREDNISOLONE. [Suspect]
     Active Substance: PREDNISOLONE
     Dates: start: 20110318, end: 20110414
  2. METOLATE [Suspect]
     Active Substance: METHOTREXATE
     Dosage: 8 MG/WEEK
     Dates: start: 20101116, end: 20110526
  3. PREDNISOLONE. [Suspect]
     Active Substance: PREDNISOLONE
     Dates: start: 20110415, end: 20110708
  4. PREDNISOLONE. [Suspect]
     Active Substance: PREDNISOLONE
     Dates: start: 20110709, end: 20110826
  5. HUMIRA [Suspect]
     Active Substance: ADALIMUMAB
     Indication: POLYARTHRITIS
     Dates: start: 20110204, end: 20111216
  6. PREDNISOLONE. [Suspect]
     Active Substance: PREDNISOLONE
     Dates: start: 20110218, end: 20110317
  7. METOLATE [Suspect]
     Active Substance: METHOTREXATE
     Dosage: 10 MG/WEEK
     Dates: start: 20110602, end: 20111229
  8. FOLIC ACID. [Concomitant]
     Active Substance: FOLIC ACID
     Indication: PROPHYLAXIS
     Dosage: 5 MG/WEEK
     Route: 048
     Dates: end: 20111230
  9. PREDNISOLONE. [Suspect]
     Active Substance: PREDNISOLONE
     Indication: RHEUMATOID ARTHRITIS
     Route: 048
     Dates: start: 20101012, end: 20110217
  10. METOLATE [Suspect]
     Active Substance: METHOTREXATE
     Indication: RHEUMATOID ARTHRITIS
     Dosage: 6 MG/WEEK
     Route: 048
     Dates: start: 20100928, end: 20101109
  11. HUMIRA [Suspect]
     Active Substance: ADALIMUMAB
     Indication: BEHCET^S SYNDROME
  12. PREDNISOLONE. [Suspect]
     Active Substance: PREDNISOLONE
     Dates: start: 20110827, end: 20111014

REACTIONS (3)
  - Gastrooesophageal reflux disease [Recovering/Resolving]
  - Encephalitis [Recovering/Resolving]
  - Behcet^s syndrome [Recovering/Resolving]

NARRATIVE: CASE EVENT DATE: 20110826
